FAERS Safety Report 13080446 (Version 1)
Quarter: 2017Q1

REPORT INFORMATION
  Report Type: Spontaneous
  Country: US (occurrence: US)
  Receive Date: 20170103
  Receipt Date: 20170103
  Transmission Date: 20170428
  Serious: Yes (Death, Other)
  Sender: FDA-Public Use
  Company Number: US-GLAXOSMITHKLINE-US2016GSK193607

PATIENT
  Age: 50 Year
  Sex: Male

DRUGS (20)
  1. OLANZAPINE. [Suspect]
     Active Substance: OLANZAPINE
     Dosage: UNK
     Route: 048
  2. QUETIAPINE. [Suspect]
     Active Substance: QUETIAPINE
  3. AMFETAMINE [Suspect]
     Active Substance: AMPHETAMINE
     Dosage: UNK
  4. METHYLPHENIDATE. [Suspect]
     Active Substance: METHYLPHENIDATE
     Dosage: UNK
  5. CHLORPROMAZINE. [Suspect]
     Active Substance: CHLORPROMAZINE
     Dosage: UNK
  6. LORAZEPAM. [Suspect]
     Active Substance: LORAZEPAM
     Dosage: UNK
  7. HALOPERIDOL. [Suspect]
     Active Substance: HALOPERIDOL
     Dosage: UNK
  8. DOXEPIN [Suspect]
     Active Substance: DOXEPIN
     Dosage: UNK
  9. CLONAZEPAM. [Suspect]
     Active Substance: CLONAZEPAM
     Dosage: UNK
  10. GLIPIZIDE. [Suspect]
     Active Substance: GLIPIZIDE
     Dosage: UNK
  11. BUPROPION. [Suspect]
     Active Substance: BUPROPION
     Dosage: UNK
  12. VENLAFAXINE [Suspect]
     Active Substance: VENLAFAXINE HYDROCHLORIDE
     Dosage: UNK
  13. ALPHA BLOCKER [Suspect]
     Active Substance: UNSPECIFIED INGREDIENT
     Dosage: UNK
  14. TEMAZEPAM. [Suspect]
     Active Substance: TEMAZEPAM
  15. DULOXETINE. [Suspect]
     Active Substance: DULOXETINE
     Dosage: UNK
  16. GLIMEPIRIDE. [Suspect]
     Active Substance: GLIMEPIRIDE
     Dosage: UNK
  17. FLUOXETINE [Suspect]
     Active Substance: FLUOXETINE HYDROCHLORIDE
     Dosage: UNK
  18. LISINOPRIL. [Suspect]
     Active Substance: LISINOPRIL
     Dosage: UNK
  19. CYCLOBENZAPRINE [Suspect]
     Active Substance: CYCLOBENZAPRINE
     Dosage: UNK
  20. CLONIDINE. [Suspect]
     Active Substance: CLONIDINE
     Dosage: UNK

REACTIONS (1)
  - Completed suicide [Fatal]
